FAERS Safety Report 16177818 (Version 1)
Quarter: 2019Q2

REPORT INFORMATION
  Report Type: Spontaneous
  Country: ES (occurrence: ES)
  Receive Date: 20190410
  Receipt Date: 20190410
  Transmission Date: 20190711
  Serious: Yes (Death, Life-Threatening, Other)
  Sender: FDA-Public Use
  Company Number: ES-AUROBINDO-AUR-APL-2019-018877

PATIENT

DRUGS (13)
  1. BEVACIZUMAB. [Concomitant]
     Active Substance: BEVACIZUMAB
     Indication: METASTASES TO LIVER
  2. OXALIPLATIN. [Suspect]
     Active Substance: OXALIPLATIN
     Indication: COLON CANCER
     Dosage: UNK, 14 CYCLE
     Route: 065
     Dates: start: 201309
  3. BEVACIZUMAB. [Concomitant]
     Active Substance: BEVACIZUMAB
     Indication: COLON CANCER
  4. BEVACIZUMAB. [Concomitant]
     Active Substance: BEVACIZUMAB
     Indication: ADENOCARCINOMA
     Dosage: UNK, 14 CYCLE
     Route: 065
     Dates: start: 201309
  5. FOLINIC ACID [Concomitant]
     Active Substance: LEUCOVORIN
     Indication: ADENOCARCINOMA
     Dosage: UNK, 14 CYCLE
     Route: 065
     Dates: start: 201309
  6. URSODEOXYCHOLIC ACID [Concomitant]
     Active Substance: URSODIOL
     Indication: PROPHYLAXIS
     Dosage: UNK
     Route: 065
  7. FOLINIC ACID [Concomitant]
     Active Substance: LEUCOVORIN
     Indication: COLON CANCER
  8. OXALIPLATIN. [Interacting]
     Active Substance: OXALIPLATIN
     Indication: ADENOCARCINOMA
  9. OXALIPLATIN. [Interacting]
     Active Substance: OXALIPLATIN
     Indication: METASTASES TO LIVER
  10. FOLINIC ACID [Concomitant]
     Active Substance: LEUCOVORIN
     Indication: METASTASES TO LIVER
  11. FLUOROURACIL. [Concomitant]
     Active Substance: FLUOROURACIL
     Indication: METASTASES TO LIVER
     Dosage: UNK, 14 BIWEEKLY
     Route: 065
     Dates: start: 201309
  12. FLUOROURACIL. [Concomitant]
     Active Substance: FLUOROURACIL
     Indication: COLON CANCER
  13. FLUOROURACIL. [Concomitant]
     Active Substance: FLUOROURACIL
     Indication: ADENOCARCINOMA

REACTIONS (5)
  - Radiation interaction [Unknown]
  - Portal hypertension [Unknown]
  - Hepatic failure [Fatal]
  - Duodenal ulcer haemorrhage [Unknown]
  - Neuropathy peripheral [Unknown]
